FAERS Safety Report 9769706 (Version 2)
Quarter: 2013Q4

REPORT INFORMATION
  Report Type: Spontaneous
  Country: US (occurrence: US)
  Receive Date: 20131218
  Receipt Date: 20131218
  Transmission Date: 20140711
  Serious: No
  Sender: FDA-Public Use
  Company Number: US-VERTEX PHARMACEUTICALS INC-AE-2011-000410

PATIENT
  Age: 51 Year
  Sex: Male

DRUGS (6)
  1. INCIVEK [Suspect]
     Indication: HEPATITIS C
     Route: 048
     Dates: start: 20110702, end: 20110708
  2. PEGASYS [Concomitant]
     Indication: HEPATITIS C
     Dates: start: 20110702
  3. COPEGUS [Concomitant]
     Indication: HEPATITIS C
     Route: 048
     Dates: start: 20110702
  4. LIBRAX [Concomitant]
     Indication: IRRITABLE BOWEL SYNDROME
     Route: 048
     Dates: start: 201101
  5. VITAMIN B [Concomitant]
  6. VITAMIN C [Concomitant]

REACTIONS (2)
  - Local swelling [Not Recovered/Not Resolved]
  - Rash vesicular [Recovered/Resolved]
